FAERS Safety Report 25436334 (Version 1)
Quarter: 2025Q2

REPORT INFORMATION
  Report Type: Spontaneous
  Country: IT (occurrence: IT)
  Receive Date: 20250614
  Receipt Date: 20250614
  Transmission Date: 20250716
  Serious: Yes (Life-Threatening, Hospitalization, Other)
  Sender: AUROBINDO
  Company Number: IT-Accord-358413

PATIENT
  Age: 57 Year
  Sex: Female
  Weight: 62.5 kg

DRUGS (2)
  1. PACLITAXEL [Suspect]
     Active Substance: PACLITAXEL
     Indication: Anal squamous cell carcinoma
     Route: 065
     Dates: start: 20221031
  2. CARBOPLATIN [Suspect]
     Active Substance: CARBOPLATIN
     Indication: Anal squamous cell carcinoma
     Route: 065
     Dates: start: 20221031, end: 20230330

REACTIONS (5)
  - Hyponatraemia [Recovered/Resolved]
  - Neutrophil count decreased [Unknown]
  - Anaemia [Not Recovered/Not Resolved]
  - Oedema [Unknown]
  - Urinary tract spasm [Unknown]

NARRATIVE: CASE EVENT DATE: 20230105
